FAERS Safety Report 5995176-9 (Version None)
Quarter: 2008Q4

REPORT INFORMATION
  Report Type: 
  Country: None (occurrence: None)
  Receive Date: 20081212
  Receipt Date: 20080610
  Transmission Date: 20090506
  Serious: No
  Sender: FDA-Public Use
  Company Number: US-AMGEN-KDL285046

PATIENT
  Sex: Female
  Weight: 68.6 kg

DRUGS (4)
  1. ENBREL [Suspect]
     Indication: RHEUMATOID ARTHRITIS
     Route: 058
     Dates: start: 20080501, end: 20080501
  2. METHOTREXATE [Concomitant]
     Route: 048
     Dates: start: 20070401
  3. METOPROLOL [Concomitant]
  4. FOLIC ACID [Concomitant]
     Dates: start: 20070401

REACTIONS (1)
  - SWOLLEN TONGUE [None]
